FAERS Safety Report 9193740 (Version 1)
Quarter: 2013Q1

REPORT INFORMATION
  Report Type: Spontaneous
  Country: US (occurrence: None)
  Receive Date: 20130325
  Receipt Date: 20130325
  Transmission Date: 20140127
  Serious: No
  Sender: FDA-Public Use
  Company Number: None

PATIENT
  Age: 63 Year
  Sex: Female

DRUGS (12)
  1. SUMATRIPTAN [Suspect]
     Indication: MIGRAINE WITHOUT AURA
     Route: 048
     Dates: start: 20130315
  2. SUMATRIPTAN [Suspect]
     Indication: MIGRAINE WITHOUT AURA
     Route: 048
     Dates: start: 201302
  3. IBUPROFEN [Concomitant]
  4. ARIPIPRAZOLE [Concomitant]
  5. ACETAMINOPHEN/CODEINE [Concomitant]
  6. WELLBUTRIN XL [Concomitant]
  7. FLEXERIL [Concomitant]
  8. QUETIAPINE [Concomitant]
  9. CELEBREX [Concomitant]
  10. DULOXETINE [Concomitant]
  11. BENADRYL [Concomitant]
  12. CLONAZEPAM [Concomitant]

REACTIONS (3)
  - Product substitution issue [None]
  - Drug ineffective [None]
  - Product quality issue [None]
